FAERS Safety Report 4485770-9 (Version None)
Quarter: 2004Q4

REPORT INFORMATION
  Report Type: 
  Country: None (occurrence: None)
  Receive Date: 20041022
  Receipt Date: 20041013
  Transmission Date: 20050328
  Serious: Yes (Hospitalization)
  Sender: FDA-Public Use
  Company Number: HQWYE113626MAY04

PATIENT
  Age: 48 Year
  Sex: Female
  Weight: 67.19 kg

DRUGS (5)
  1. PREMPRO [Suspect]
     Indication: HOT FLUSH
     Dosage: 0.625MG/2.5MG ONCE DAILY, ORAL
     Route: 048
     Dates: start: 20021001, end: 20031201
  2. ESTRADIOL [Suspect]
     Indication: HOT FLUSH
     Dosage: 1 MG 1X PER 1 DAY, ORAL
     Route: 048
     Dates: start: 20031201, end: 20040101
  3. COZAAR [Concomitant]
  4. EFFEXOR XR [Concomitant]
  5. PREVACID [Concomitant]

REACTIONS (4)
  - BREAST MASS [None]
  - CERVIX CARCINOMA [None]
  - CHOLELITHIASIS [None]
  - HAEMANGIOMA OF LIVER [None]
